FAERS Safety Report 10887001 (Version 3)
Quarter: 2016Q4

REPORT INFORMATION
  Report Type: Spontaneous
  Country: US (occurrence: US)
  Receive Date: 20150304
  Receipt Date: 20161020
  Transmission Date: 20170206
  Serious: Yes (Other)
  Sender: FDA-Public Use
  Company Number: US-PFIZER INC-2015074691

PATIENT
  Age: 70 Year
  Sex: Female
  Weight: 94 kg

DRUGS (1)
  1. XELJANZ [Suspect]
     Active Substance: TOFACITINIB CITRATE
     Indication: ARTHRITIS
     Dosage: 5 MG, 2X/DAY
     Dates: start: 2014

REACTIONS (3)
  - Herpes zoster [Unknown]
  - Abasia [Unknown]
  - Pain [Not Recovered/Not Resolved]
